FAERS Safety Report 9015400 (Version 1)
Quarter: 2013Q1

REPORT INFORMATION
  Report Type: Spontaneous
  Country: GB (occurrence: None)
  Receive Date: 20130103
  Receipt Date: 20130103
  Transmission Date: 20140127
  Serious: Yes (Hospitalization, Other)
  Sender: FDA-Public Use
  Company Number: CL-462-2012

PATIENT
  Age: 46 Year
  Sex: Male

DRUGS (1)
  1. NOREPINEPHRINE [Suspect]
     Indication: HAEMODYNAMIC INSTABILITY
     Route: 042

REACTIONS (3)
  - Drug administration error [None]
  - Infusion site extravasation [None]
  - Infusion site necrosis [None]
